FAERS Safety Report 5764848-3 (Version None)
Quarter: 2008Q2

REPORT INFORMATION
  Report Type: 
  Country: None (occurrence: None)
  Receive Date: 20080611
  Receipt Date: 20080602
  Transmission Date: 20081010
  Serious: Yes (Hospitalization)
  Sender: FDA-Public Use
  Company Number: US-ELI_LILLY_AND_COMPANY-US200804001385

PATIENT
  Sex: Female

DRUGS (16)
  1. FORTEO [Suspect]
     Indication: FRACTURE
     Dosage: 20 UG, DAILY (1/D)
     Dates: start: 20080126
  2. CYMBALTA [Concomitant]
  3. LEVOXYL [Concomitant]
  4. LISINOPRIL [Concomitant]
  5. IRON [Concomitant]
  6. TRIAMTEREN [Concomitant]
  7. AGGRENOX [Concomitant]
  8. DIOVAN [Concomitant]
  9. ROBAXIN [Concomitant]
  10. HYDROCHLOROTHIAZIDE [Concomitant]
  11. MULTIVITAMIN [Concomitant]
  12. ASCORBIC ACID [Concomitant]
  13. VITAMIN B6 [Concomitant]
  14. VITAMIN B-12 [Concomitant]
  15. FOLIC ACID [Concomitant]
  16. FIORINAL [Concomitant]

REACTIONS (3)
  - ABASIA [None]
  - DEVICE FAILURE [None]
  - FRACTURE NONUNION [None]
